FAERS Safety Report 25156763 (Version 1)
Quarter: 2025Q2

REPORT INFORMATION
  Report Type: Spontaneous
  Country: GB (occurrence: GB)
  Receive Date: 20250403
  Receipt Date: 20250403
  Transmission Date: 20250717
  Serious: Yes (Other)
  Sender: GLAXOSMITHKLINE
  Company Number: None

PATIENT

DRUGS (1)
  1. SUMATRIPTAN [Suspect]
     Active Substance: SUMATRIPTAN
     Indication: Migraine
     Route: 065
     Dates: start: 202503

REACTIONS (2)
  - Maternal exposure during breast feeding [Unknown]
  - Breast pain [Recovered/Resolved]

NARRATIVE: CASE EVENT DATE: 20250321
